FAERS Safety Report 23835621 (Version 2)
Quarter: 2024Q2

REPORT INFORMATION
  Report Type: Spontaneous
  Country: US (occurrence: US)
  Receive Date: 20240509
  Receipt Date: 20240619
  Transmission Date: 20240716
  Serious: No
  Sender: FDA-Public Use
  Company Number: US-BRISTOL-MYERS SQUIBB COMPANY-2024-072006

PATIENT
  Age: 74 Year
  Sex: Female

DRUGS (1)
  1. POMALYST [Suspect]
     Active Substance: POMALIDOMIDE
     Indication: Plasma cell myeloma
     Route: 048

REACTIONS (6)
  - Pain [Not Recovered/Not Resolved]
  - Asthenia [Unknown]
  - Gait disturbance [Recovering/Resolving]
  - Blood pressure increased [Unknown]
  - Muscular weakness [Not Recovered/Not Resolved]
  - Balance disorder [Unknown]
